FAERS Safety Report 7357684-8 (Version None)
Quarter: 2011Q1

REPORT INFORMATION
  Report Type: 
  Country: None (occurrence: None)
  Receive Date: 20110314
  Receipt Date: 20110314
  Transmission Date: 20110831
  Serious: Yes (Other)
  Sender: FDA-Public Use
  Company Number: None

PATIENT
  Age: 51 Year
  Sex: Male
  Weight: 76.6579 kg

DRUGS (4)
  1. VICODIN [Suspect]
     Indication: INTERVERTEBRAL DISC DISORDER
     Dosage: 1 EVERY 4 HOURS PO
     Route: 048
     Dates: start: 20010705, end: 20050607
  2. VICODIN [Suspect]
     Indication: NECK PAIN
     Dosage: 1 EVERY 4 HOURS PO
     Route: 048
     Dates: start: 20010705, end: 20050607
  3. DURAGESIC-50 [Suspect]
     Indication: INTERVERTEBRAL DISC DISORDER
     Dosage: 1 EVERY 2 DAYS TRANSDERMAL
     Route: 062
     Dates: start: 20010706, end: 20050607
  4. DURAGESIC-50 [Suspect]
     Indication: NECK PAIN
     Dosage: 1 EVERY 2 DAYS TRANSDERMAL
     Route: 062
     Dates: start: 20010706, end: 20050607

REACTIONS (3)
  - PRURITUS [None]
  - RASH [None]
  - PARAESTHESIA [None]
